FAERS Safety Report 5324904-0 (Version None)
Quarter: 2007Q2

REPORT INFORMATION
  Report Type: 
  Country: None (occurrence: None)
  Receive Date: 20070515
  Receipt Date: 20070507
  Transmission Date: 20071010
  Serious: Yes (Hospitalization)
  Sender: FDA-Public Use
  Company Number: JP-AMGEN-US224336

PATIENT
  Sex: Female
  Weight: 50 kg

DRUGS (7)
  1. ENBREL [Suspect]
     Indication: RHEUMATOID ARTHRITIS
     Route: 058
     Dates: start: 20060901, end: 20070326
  2. PREDNISOLONE [Suspect]
     Indication: RHEUMATOID ARTHRITIS
     Dosage: UNSPECIFIED
     Route: 048
  3. MOBIC [Concomitant]
     Indication: RHEUMATOID ARTHRITIS
     Dosage: UNSPECIFIED
     Route: 048
  4. BONALON [Concomitant]
     Dosage: UNSPECIFIED
     Route: 048
  5. AMLODIN [Concomitant]
     Dosage: UNSPECIFIED
     Route: 048
  6. MAGNESIUM OXIDE [Concomitant]
     Dosage: UNSPECIFIED
     Route: 048
  7. TAKEPRON [Concomitant]
     Dosage: UNSPECIFIED
     Route: 048

REACTIONS (1)
  - PELVIC FRACTURE [None]
